FAERS Safety Report 18262114 (Version 1)
Quarter: 2020Q3

REPORT INFORMATION
  Report Type: Report from Study
  Country: US (occurrence: US)
  Receive Date: 20200914
  Receipt Date: 20200914
  Transmission Date: 20201103
  Serious: Yes (Life-Threatening, Other)
  Sender: FDA-Public Use
  Company Number: US-PFIZER INC-2020344539

PATIENT

DRUGS (2)
  1. METHOTREXATE SODIUM. [Suspect]
     Active Substance: METHOTREXATE SODIUM
     Indication: LEUKAEMIA
     Dosage: UNK, (15 MG/SQ )
     Route: 037
  2. METHOTREXATE SODIUM. [Suspect]
     Active Substance: METHOTREXATE SODIUM
     Dosage: UNK, (7 .5MG/SQ M)
     Route: 037

REACTIONS (4)
  - Meningitis chemical [Unknown]
  - Subdural effusion [Unknown]
  - Toxicity to various agents [Unknown]
  - Central nervous system leukaemia [Unknown]
